FAERS Safety Report 8082035-3 (Version None)
Quarter: 2012Q1

REPORT INFORMATION
  Report Type: 
  Country: None (occurrence: None)
  Receive Date: 20120130
  Receipt Date: 20120126
  Transmission Date: 20120608
  Serious: Yes (Death, Hospitalization, Other)
  Sender: FDA-Public Use
  Company Number: PHFR2012GB000450

PATIENT
  Sex: Female

DRUGS (15)
  1. LUCENTIS [Suspect]
  2. ACETAMINOPHEN [Concomitant]
     Dosage: 500 MG, UNK
  3. WARFARIN SODIUM [Concomitant]
     Dosage: 3 MG, UNK
  4. NITROGLYCERIN [Concomitant]
     Dosage: 400 UG, UNK
  5. WARFARIN SODIUM [Concomitant]
     Dosage: 1 MG, UNK
  6. EPADERM [Concomitant]
     Dosage: 500 G, UNK
  7. ALENDRONIC ACID [Concomitant]
     Dosage: 70 MG, UNK
  8. CALCEOS [Concomitant]
     Dosage: 1 UKN, BID
  9. WARFARIN SODIUM [Concomitant]
     Dosage: 5 MG, UNK
  10. AMIODARONE HCL [Suspect]
     Dosage: 200 MG, UNK
  11. ELASTICATED VISCOSE [Concomitant]
  12. RAMIPRIL [Concomitant]
     Dosage: 5 MG, QD
  13. BISOPROLOL [Concomitant]
     Dosage: 2.5 MG, QD
  14. OMEPRAZOLE [Concomitant]
     Dosage: 40 MG, UNK
  15. FUROSEMIDE [Concomitant]
     Dosage: 40 MG, UNK

REACTIONS (5)
  - ATRIAL FIBRILLATION [None]
  - PNEUMONIA [None]
  - PNEUMONITIS [None]
  - MYOCARDIAL INFARCTION [None]
  - TRANSIENT ISCHAEMIC ATTACK [None]
